FAERS Safety Report 7745333-6 (Version None)
Quarter: 2011Q3

REPORT INFORMATION
  Report Type: 
  Country: None (occurrence: None)
  Receive Date: 20110908
  Receipt Date: 20110810
  Transmission Date: 20111222
  Serious: Yes (Death)
  Sender: FDA-Public Use
  Company Number: FK201101675

PATIENT
  Age: 57 Year
  Sex: Male

DRUGS (2)
  1. VINORELBINE [Suspect]
     Indication: MESOTHELIOMA MALIGNANT
  2. GEMCITABINE [Suspect]
     Indication: MESOTHELIOMA MALIGNANT

REACTIONS (2)
  - INTERSTITIAL LUNG DISEASE [None]
  - ACUTE INTERSTITIAL PNEUMONITIS [None]
